FAERS Safety Report 4767737-6 (Version None)
Quarter: 2005Q3

REPORT INFORMATION
  Report Type: 
  Country: None (occurrence: None)
  Receive Date: 20050912
  Receipt Date: 20050823
  Transmission Date: 20060218
  Serious: Yes (Death)
  Sender: FDA-Public Use
  Company Number: 2005BH001350

PATIENT

DRUGS (3)
  1. DEXAMETHASONE [Suspect]
     Indication: MULTIPLE MYELOMA
  2. VINCRISTINE SULFATE [Suspect]
     Indication: MULTIPLE MYELOMA
  3. DOXORUBICIN GENERIC (DOXORUBICIN) [Suspect]
     Indication: MULTIPLE MYELOMA

REACTIONS (1)
  - MYOCARDIAL INFARCTION [None]
